FAERS Safety Report 5403972-1 (Version None)
Quarter: 2007Q3

REPORT INFORMATION
  Report Type: 
  Country: None (occurrence: None)
  Receive Date: 20070802
  Receipt Date: 20070727
  Transmission Date: 20080115
  Serious: Yes (Other)
  Sender: FDA-Public Use
  Company Number: B0424442A

PATIENT
  Age: 40 Year
  Sex: Female

DRUGS (15)
  1. PAXIL [Suspect]
     Indication: DEPRESSION
     Route: 048
     Dates: start: 20060223, end: 20060528
  2. LEVOTOMIN [Suspect]
     Indication: INSOMNIA
     Dosage: 25MG PER DAY
     Route: 048
     Dates: start: 20060424, end: 20060515
  3. PROMETHAZINE [Suspect]
     Indication: INSOMNIA
     Dosage: 25MG PER DAY
     Route: 048
     Dates: start: 20060424
  4. ZYPREXA [Suspect]
     Indication: INSOMNIA
     Route: 048
     Dates: start: 20060330, end: 20060418
  5. MEILAX [Concomitant]
     Indication: INSOMNIA
     Dosage: 1MG PER DAY
     Route: 048
     Dates: start: 20060202
  6. MYSLEE [Concomitant]
     Indication: INSOMNIA
     Dosage: 5MG PER DAY
     Route: 048
     Dates: start: 20060202
  7. MAGLAX [Concomitant]
     Indication: CONSTIPATION
     Dosage: 1.5G PER DAY
     Route: 048
     Dates: start: 20060316
  8. MYONAL [Concomitant]
     Indication: TENSION HEADACHE
     Dosage: 200MG PER DAY
     Route: 048
     Dates: start: 20060202
  9. SEROQUEL [Concomitant]
     Indication: INSOMNIA
     Dosage: 100MG PER DAY
     Route: 048
     Dates: start: 20060317, end: 20060326
  10. LORAZEPAM [Concomitant]
     Indication: ANXIETY
     Route: 048
     Dates: start: 20060409, end: 20060508
  11. POLARAMINE [Concomitant]
     Indication: ANTIALLERGIC THERAPY
     Dosage: 2MG PER DAY
     Route: 048
     Dates: start: 20060420
  12. TOLEDOMIN [Concomitant]
     Indication: DEPRESSION
     Route: 048
     Dates: start: 20060516
  13. HALCION [Concomitant]
     Indication: DEPRESSION
     Dosage: .25MG PER DAY
     Route: 048
     Dates: start: 20060516
  14. UBRETID [Concomitant]
     Indication: CYSTITIS
     Dosage: 4.5MG PER DAY
     Route: 048
     Dates: start: 20060522, end: 20060524
  15. BESACOLIN [Concomitant]
     Indication: CYSTITIS
     Route: 048
     Dates: start: 20060525

REACTIONS (9)
  - ALANINE AMINOTRANSFERASE INCREASED [None]
  - ASPARTATE AMINOTRANSFERASE INCREASED [None]
  - BLOOD CHOLESTEROL INCREASED [None]
  - CONSTIPATION [None]
  - GAMMA-GLUTAMYLTRANSFERASE INCREASED [None]
  - HYPERLIPIDAEMIA [None]
  - HYPERPHAGIA [None]
  - THIRST [None]
  - WEIGHT INCREASED [None]
